FAERS Safety Report 4567910-6 (Version None)
Quarter: 2005Q1

REPORT INFORMATION
  Report Type: 
  Country: None (occurrence: None)
  Receive Date: 20050202
  Receipt Date: 20050120
  Transmission Date: 20050727
  Serious: Yes (Hospitalization)
  Sender: FDA-Public Use
  Company Number: FR-JNJFOC-20050105217

PATIENT
  Age: 84 Year
  Sex: Female
  Weight: 55 kg

DRUGS (7)
  1. HALDOL [Suspect]
     Indication: DRUG USE FOR UNKNOWN INDICATION
     Route: 049
  2. PIPRAM [Suspect]
     Indication: DRUG USE FOR UNKNOWN INDICATION
     Route: 049
  3. COZAAR [Suspect]
     Indication: DRUG USE FOR UNKNOWN INDICATION
     Route: 049
  4. OMEPRAZOLE [Suspect]
     Indication: DRUG USE FOR UNKNOWN INDICATION
     Route: 049
  5. STILNOX [Suspect]
     Indication: DRUG USE FOR UNKNOWN INDICATION
     Route: 049
  6. ARTHROTEC [Suspect]
     Route: 049
  7. ARTHROTEC [Suspect]
     Indication: DRUG USE FOR UNKNOWN INDICATION
     Route: 049

REACTIONS (7)
  - ATRIOVENTRICULAR BLOCK FIRST DEGREE [None]
  - CAROTID BRUIT [None]
  - DIZZINESS [None]
  - IATROGENIC INJURY [None]
  - MALAISE [None]
  - SINUS ARRHYTHMIA [None]
  - SYNCOPE [None]
